FAERS Safety Report 13670809 (Version 1)
Quarter: 2017Q2

REPORT INFORMATION
  Report Type: Spontaneous
  Country: US (occurrence: US)
  Receive Date: 20170620
  Receipt Date: 20170620
  Transmission Date: 20170830
  Serious: No
  Sender: FDA-Public Use
  Company Number: US-ROCHE-1015896

PATIENT
  Age: 62 Year
  Sex: Male

DRUGS (2)
  1. XELODA [Suspect]
     Active Substance: CAPECITABINE
     Indication: THROAT CANCER
     Route: 048
     Dates: start: 201110
  2. LAPATINIB [Concomitant]
     Active Substance: LAPATINIB

REACTIONS (2)
  - Cheilitis [Unknown]
  - Dyspepsia [Unknown]

NARRATIVE: CASE EVENT DATE: 20111019
